FAERS Safety Report 18761124 (Version 3)
Quarter: 2021Q2

REPORT INFORMATION
  Report Type: Spontaneous
  Country: US (occurrence: US)
  Receive Date: 20210119
  Receipt Date: 20210624
  Transmission Date: 20210717
  Serious: Yes (Hospitalization, Other)
  Sender: FDA-Public Use
  Company Number: US-UNITED THERAPEUTICS-UNT-2020-020274

PATIENT
  Age: 52 Year
  Sex: Female
  Weight: 90.7 kg

DRUGS (5)
  1. TYVASO [Suspect]
     Active Substance: TREPROSTINIL
     Dosage: UNK
  2. SILDENAFIL CITRATE. [Concomitant]
     Active Substance: SILDENAFIL CITRATE
     Indication: PRODUCT USED FOR UNKNOWN INDICATION
     Dosage: UNK
     Route: 065
  3. TYVASO [Suspect]
     Active Substance: TREPROSTINIL
     Dosage: UNK
  4. TYVASO [Suspect]
     Active Substance: TREPROSTINIL
     Indication: PULMONARY ARTERIAL HYPERTENSION
     Dosage: UNK
     Dates: start: 20200206
  5. TYVASO [Suspect]
     Active Substance: TREPROSTINIL
     Dosage: 18?54 ?G, QID
     Dates: start: 2020

REACTIONS (4)
  - Nausea [Unknown]
  - Pneumonia [Unknown]
  - Hepatic infection [Unknown]
  - Hernia [Not Recovered/Not Resolved]

NARRATIVE: CASE EVENT DATE: 2020
